FAERS Safety Report 6577851-0 (Version None)
Quarter: 2010Q1

REPORT INFORMATION
  Report Type: 
  Country: None (occurrence: None)
  Receive Date: 20100211
  Receipt Date: 20100201
  Transmission Date: 20100710
  Serious: Yes (Hospitalization, Other)
  Sender: FDA-Public Use
  Company Number: US-ROCHE-683746

PATIENT

DRUGS (5)
  1. BLINDED BEVACIZUMAB [Suspect]
     Indication: TRANSITIONAL CELL CARCINOMA
     Dosage: ON DAY 1.
     Route: 042
     Dates: start: 20091223
  2. CISPLATIN [Suspect]
     Indication: TRANSITIONAL CELL CARCINOMA
     Dosage: ON DAY 1.
     Route: 042
     Dates: start: 20091223
  3. GEMCITABINE [Suspect]
     Indication: TRANSITIONAL CELL CARCINOMA
     Dosage: ON DAY 1 AND 8.
     Route: 042
     Dates: start: 20091223
  4. ASPIRIN [Concomitant]
  5. PLAVIX [Concomitant]

REACTIONS (4)
  - BLOOD ALBUMIN DECREASED [None]
  - CEREBRAL ISCHAEMIA [None]
  - DYSPNOEA [None]
  - THROMBOSIS [None]
